FAERS Safety Report 9743031 (Version 1)
Quarter: 2013Q4

REPORT INFORMATION
  Report Type: Spontaneous
  Country: AT (occurrence: AT)
  Receive Date: 20131210
  Receipt Date: 20131210
  Transmission Date: 20140711
  Serious: Yes (Hospitalization)
  Sender: FDA-Public Use
  Company Number: AT-ELI_LILLY_AND_COMPANY-AT201312000850

PATIENT
  Sex: Male
  Weight: 82 kg

DRUGS (4)
  1. EFIENT [Suspect]
     Indication: ANGINA PECTORIS
     Dosage: 60 MG, SINGLE
     Route: 048
     Dates: start: 20111017, end: 20111017
  2. EFIENT [Suspect]
     Indication: MYOCARDIAL ISCHAEMIA
     Dosage: 10 MG, QD
     Route: 048
     Dates: start: 20111018, end: 20130401
  3. ASPIRIN [Concomitant]
     Dosage: 300-500 MG LOADING DOSE
     Route: 048
  4. ASPIRIN [Concomitant]
     Dosage: 100 MG, QD
     Route: 048

REACTIONS (2)
  - Angina pectoris [Recovered/Resolved]
  - Coronary artery restenosis [Recovered/Resolved]
